FAERS Safety Report 14227034 (Version 1)
Quarter: 2017Q4

REPORT INFORMATION
  Report Type: Report from Study
  Country: CA (occurrence: CA)
  Receive Date: 20171127
  Receipt Date: 20171127
  Transmission Date: 20180321
  Serious: Yes (Death)
  Sender: FDA-Public Use
  Company Number: CA-JNJFOC-20171125185

PATIENT
  Sex: Male
  Weight: 63 kg

DRUGS (1)
  1. STELARA [Suspect]
     Active Substance: USTEKINUMAB
     Indication: CROHN^S DISEASE
     Dosage: STRENGTH = 90 MG
     Route: 058
     Dates: start: 20170404, end: 20170602

REACTIONS (3)
  - Drug dose omission [Unknown]
  - Septic shock [Fatal]
  - Mental disorder [Unknown]

NARRATIVE: CASE EVENT DATE: 2017
